FAERS Safety Report 15485253 (Version 1)
Quarter: 2018Q4

REPORT INFORMATION
  Report Type: Spontaneous
  Country: US (occurrence: US)
  Receive Date: 20181010
  Receipt Date: 20181010
  Transmission Date: 20190205
  Serious: No
  Sender: FDA-Public Use
  Company Number: US-ROCHE-2185380

PATIENT
  Age: 49 Year
  Sex: Female

DRUGS (2)
  1. ALECENSA [Suspect]
     Active Substance: ALECTINIB HYDROCHLORIDE
     Indication: LUNG NEOPLASM MALIGNANT
     Dosage: ONGOING
     Route: 048
     Dates: start: 20180821
  2. PREDNISONE. [Concomitant]
     Active Substance: PREDNISONE
     Dosage: DISCONTINUED
     Route: 065
     Dates: end: 20180907

REACTIONS (2)
  - Muscular weakness [Unknown]
  - Asthenia [Unknown]

NARRATIVE: CASE EVENT DATE: 20180912
